FAERS Safety Report 18190749 (Version 2)
Quarter: 2020Q3

REPORT INFORMATION
  Report Type: Spontaneous
  Country: IN (occurrence: IN)
  Receive Date: 20200824
  Receipt Date: 20200902
  Transmission Date: 20201103
  Serious: Yes (Hospitalization, Other)
  Sender: FDA-Public Use
  Company Number: IN-SA-2020SA216471

PATIENT

DRUGS (8)
  1. LANSOPRAZOLE. [Concomitant]
     Active Substance: LANSOPRAZOLE
     Dosage: 15 MG, QD
     Route: 065
  2. ATORVASTATIN [Concomitant]
     Active Substance: ATORVASTATIN
     Dosage: 10 MG, QD
     Route: 065
  3. AMLODIPINE [Concomitant]
     Active Substance: AMLODIPINE BESYLATE
  4. CARVEDILOL. [Concomitant]
     Active Substance: CARVEDILOL
     Dosage: 10 MG, QD
     Route: 065
  5. BISOPROLOL [Concomitant]
     Active Substance: BISOPROLOL
     Dosage: 4 MG, QD
     Route: 065
  6. CLOPIDOGREL BISULFATE. [Suspect]
     Active Substance: CLOPIDOGREL BISULFATE
     Indication: ANTIPLATELET THERAPY
     Dosage: 75 MG, QD
     Route: 065
  7. ACETYLSALICYLIC ACID [Suspect]
     Active Substance: ASPIRIN
     Indication: ANTIPLATELET THERAPY
     Dosage: 100 MG, QD
     Route: 065
  8. NIFEDIPINE. [Concomitant]
     Active Substance: NIFEDIPINE
     Dosage: 4 MG, QD
     Route: 065

REACTIONS (22)
  - White matter lesion [Recovered/Resolved]
  - Renal impairment [Recovered/Resolved]
  - Disorientation [Recovered/Resolved]
  - Eosinophilia [Recovered/Resolved]
  - Coma scale abnormal [Recovered/Resolved]
  - Red blood cell sedimentation rate increased [Recovered/Resolved]
  - Arterial occlusive disease [Recovered/Resolved]
  - Generalised tonic-clonic seizure [Recovered/Resolved]
  - Oedema peripheral [Recovered/Resolved]
  - Tachycardia [Recovered/Resolved]
  - Pallor [Recovered/Resolved]
  - C-reactive protein increased [Recovered/Resolved]
  - Cerebral hyperperfusion syndrome [Recovered/Resolved]
  - Atheroembolism [Recovered/Resolved]
  - Blue toe syndrome [Recovered/Resolved]
  - Cerebral haemorrhage [Recovered/Resolved]
  - Cerebral haematoma [Recovered/Resolved]
  - Extensor plantar response [Recovered/Resolved]
  - Transaminases increased [Recovered/Resolved]
  - Hemiparesis [Recovered/Resolved]
  - Somnolence [Recovered/Resolved]
  - Leukocytosis [Recovered/Resolved]

NARRATIVE: CASE EVENT DATE: 201912
